FAERS Safety Report 5903779-2 (Version None)
Quarter: 2008Q3

REPORT INFORMATION
  Report Type: 
  Country: None (occurrence: None)
  Receive Date: 20080930
  Receipt Date: 20080922
  Transmission Date: 20090109
  Serious: Yes (Other)
  Sender: FDA-Public Use
  Company Number: DE-ABBOTT-08P-062-0476381-00

PATIENT
  Sex: Male

DRUGS (4)
  1. NIASPAN [Suspect]
     Indication: MIXED HYPERLIPIDAEMIA
     Route: 048
     Dates: start: 20080310
  2. NIASPAN [Suspect]
     Route: 048
     Dates: end: 20080901
  3. AMLODIPINE MALEATE [Concomitant]
     Indication: HYPERTENSION
     Route: 048
     Dates: start: 20070701, end: 20080901
  4. INEGY [Concomitant]
     Indication: MIXED HYPERLIPIDAEMIA
     Dosage: 10/80 MG
     Route: 048
     Dates: start: 20080212

REACTIONS (4)
  - EXERCISE TOLERANCE DECREASED [None]
  - GENERAL PHYSICAL HEALTH DETERIORATION [None]
  - LIVER TENDERNESS [None]
  - TRANSAMINASES INCREASED [None]
